FAERS Safety Report 8659691 (Version 2)
Quarter: 2013Q1

REPORT INFORMATION
  Report Type: Spontaneous
  Country: US (occurrence: None)
  Receive Date: 20120626
  Receipt Date: 20130130
  Transmission Date: 20140127
  Serious: Yes (Other)
  Sender: FDA-Public Use
  Company Number: AUR-APL-2012-02717

PATIENT
  Age: 74 Year
  Sex: Female
  Weight: 77.1 kg

DRUGS (4)
  1. VENLAFAXINE [Suspect]
     Indication: DEPRESSION
     Route: 048
     Dates: start: 2011
  2. VENLAFAXINE [Suspect]
     Indication: STRESS
     Route: 048
     Dates: start: 2011
  3. EFFEXOR XR [Suspect]
     Indication: DEPRESSION
     Dosage: 75 MG (75 MG, 1 IN 1 D), ORAL
     Route: 048
     Dates: start: 2011
  4. EFFEXOR XR [Suspect]
     Indication: STRESS
     Dosage: 75 MG (75 MG, 1 IN 1 D), ORAL
     Route: 048
     Dates: start: 2011

REACTIONS (11)
  - Economic problem [None]
  - Knee arthroplasty [None]
  - Hip surgery [None]
  - Abdominal discomfort [None]
  - Hypersensitivity [None]
  - Pyrexia [None]
  - Nausea [None]
  - Sleep disorder [None]
  - Malaise [None]
  - Fatigue [None]
  - Flushing [None]
